FAERS Safety Report 7637673-6 (Version None)
Quarter: 2011Q3

REPORT INFORMATION
  Report Type: 
  Country: None (occurrence: None)
  Receive Date: 20110726
  Receipt Date: 20110516
  Transmission Date: 20111222
  Serious: No
  Sender: FDA-Public Use
  Company Number: US-AMGEN-USASP2011025462

PATIENT
  Sex: Male

DRUGS (3)
  1. EPOGEN [Suspect]
     Indication: RENAL FAILURE CHRONIC
  2. FERROUS SULFATE TAB [Concomitant]
     Dosage: UNK
     Route: 042
  3. EPOGEN [Suspect]

REACTIONS (4)
  - HEADACHE [None]
  - PRURITUS [None]
  - BLOOD PRESSURE INCREASED [None]
  - NAUSEA [None]
